FAERS Safety Report 7328708-9 (Version None)
Quarter: 2011Q1

REPORT INFORMATION
  Report Type: 
  Country: None (occurrence: None)
  Receive Date: 20110303
  Receipt Date: 20110218
  Transmission Date: 20110831
  Serious: Yes (Other)
  Sender: FDA-Public Use
  Company Number: US-ROCHE-754036

PATIENT
  Sex: Male
  Weight: 77.8 kg

DRUGS (8)
  1. HERCEPTIN [Suspect]
     Dosage: INTERUPTED
     Route: 042
     Dates: start: 20101112, end: 20110106
  2. HERCEPTIN [Suspect]
     Dosage: RESTARTED
     Route: 042
     Dates: start: 20110121
  3. OXALIPLATIN [Suspect]
     Dosage: 5 CYCLES.FREQUENCY: 14 DAYS.INTERRUPTED
     Route: 065
     Dates: start: 20101029, end: 20110106
  4. OXALIPLATIN [Suspect]
     Dosage: RESTARTED.
     Route: 065
     Dates: start: 20110121
  5. FOLINIC ACID [Suspect]
     Dosage: RESTARTED
     Route: 065
     Dates: start: 20110121
  6. FLUOROURACIL [Suspect]
     Dosage: FREQUENCY: 14 DAYS, RESTARTED
     Route: 065
     Dates: start: 20110121
  7. FOLINIC ACID [Suspect]
     Dosage: 5 CYCLES. INTERRUPTED
     Route: 065
     Dates: end: 20110106
  8. FLUOROURACIL [Suspect]
     Dosage: FREQUENCY: 14 DAYS, INTERUPTED
     Route: 065
     Dates: start: 20101029, end: 20110106

REACTIONS (3)
  - RETINAL HAEMORRHAGE [None]
  - EYE HAEMORRHAGE [None]
  - PAPILLOEDEMA [None]
